FAERS Safety Report 4512159-6 (Version None)
Quarter: 2004Q4

REPORT INFORMATION
  Report Type: 
  Country: None (occurrence: None)
  Receive Date: 20041129
  Receipt Date: 20041118
  Transmission Date: 20050328
  Serious: Yes (Other)
  Sender: FDA-Public Use
  Company Number: FR-ROCHE-386629

PATIENT
  Age: 35 Year
  Sex: Male

DRUGS (2)
  1. CELLCEPT [Suspect]
     Route: 048
  2. CORTANCYL [Concomitant]
     Route: 048

REACTIONS (2)
  - INFERTILITY [None]
  - SPERMATOZOA PROGRESSIVE MOTILITY DECREASED [None]
